FAERS Safety Report 9286054 (Version 2)
Quarter: 2013Q2

REPORT INFORMATION
  Report Type: Spontaneous
  Country: US (occurrence: US)
  Receive Date: 20130513
  Receipt Date: 20130524
  Transmission Date: 20140414
  Serious: Yes (Hospitalization, Other)
  Sender: FDA-Public Use
  Company Number: US-AMGEN-USASP2013033050

PATIENT
  Age: 55 Year
  Sex: Female
  Weight: 104.76 kg

DRUGS (5)
  1. ENBREL [Suspect]
     Indication: PSORIATIC ARTHROPATHY
     Dosage: 50 MG, QWK
     Route: 058
     Dates: start: 2007, end: 20130315
  2. ENBREL [Suspect]
     Indication: PSORIASIS
  3. METHOTREXATE [Concomitant]
     Dosage: UNK UNK, QWK
     Dates: start: 2003, end: 20091123
  4. SULFASALAZINE [Concomitant]
     Dosage: UNK
     Dates: start: 20130215
  5. HUMIRA [Concomitant]
     Dosage: UNK

REACTIONS (2)
  - Endometrial cancer [Recovered/Resolved]
  - Postmenopausal haemorrhage [Recovered/Resolved]
